FAERS Safety Report 19277679 (Version 1)
Quarter: 2021Q2

REPORT INFORMATION
  Report Type: Report from Study
  Country: US (occurrence: US)
  Receive Date: 20210520
  Receipt Date: 20210520
  Transmission Date: 20210717
  Serious: Yes (Hospitalization)
  Sender: FDA-Public Use
  Company Number: US-GILEAD-2021-0530369

PATIENT
  Age: 8 Year
  Sex: Male

DRUGS (16)
  1. NYSTATIN. [Concomitant]
     Active Substance: NYSTATIN
  2. PREVACID [Concomitant]
     Active Substance: LANSOPRAZOLE
  3. RISPERIDONE. [Concomitant]
     Active Substance: RISPERIDONE
  4. REMERON [Concomitant]
     Active Substance: MIRTAZAPINE
  5. SINGULAIR [Concomitant]
     Active Substance: MONTELUKAST SODIUM
  6. AZITHROMYCIN ANHYDROUS. [Concomitant]
     Active Substance: AZITHROMYCIN ANHYDROUS
  7. SODIUM CHLORID [Concomitant]
  8. ORKAMBI [Concomitant]
     Active Substance: IVACAFTOR\LUMACAFTOR
  9. ALBUTEROL [SALBUTAMOL SULFATE] [Concomitant]
     Active Substance: ALBUTEROL SULFATE
  10. FLONASE [MOMETASONE FUROATE] [Concomitant]
     Active Substance: MOMETASONE FUROATE
  11. KLONOPIN [Concomitant]
     Active Substance: CLONAZEPAM
  12. MIRALAX [Concomitant]
     Active Substance: POLYETHYLENE GLYCOL 3350
  13. AZTREONAM LYSINE [Suspect]
     Active Substance: AZTREONAM LYSINE
     Indication: CYSTIC FIBROSIS
     Dosage: 75 MG, TID
     Route: 055
     Dates: start: 20210224
  14. PULMOZYME [Concomitant]
     Active Substance: DORNASE ALFA
  15. SODIUM CHLORIDE IV [Concomitant]
     Active Substance: SODIUM CHLORIDE
  16. TOBRAMYCIN. [Concomitant]
     Active Substance: TOBRAMYCIN

REACTIONS (6)
  - Respiratory disorder [Unknown]
  - Dyspepsia [Unknown]
  - Cough [Unknown]
  - Functional gastrointestinal disorder [Unknown]
  - Infection [Unknown]
  - Intentional dose omission [Recovered/Resolved]

NARRATIVE: CASE EVENT DATE: 202104
